FAERS Safety Report 7659647-1 (Version None)
Quarter: 2011Q3

REPORT INFORMATION
  Report Type: 
  Country: None (occurrence: None)
  Receive Date: 20110805
  Receipt Date: 20110725
  Transmission Date: 20111222
  Serious: Yes (Hospitalization)
  Sender: FDA-Public Use
  Company Number: US-SANOFI-AVENTIS-2011SA047620

PATIENT
  Age: 72 Year
  Sex: Female
  Weight: 66 kg

DRUGS (9)
  1. LISINOPRIL [Concomitant]
  2. DILTIAZEM [Concomitant]
  3. SIMVASTATIN [Concomitant]
  4. DRONEDARONE HCL [Suspect]
     Indication: ATRIAL FIBRILLATION
     Route: 048
     Dates: start: 20110310
  5. OMEPRAZOLE [Concomitant]
  6. WARFARIN SODIUM [Concomitant]
     Dosage: 35MG WEEKLY
  7. KLOR-CON [Concomitant]
  8. FUROSEMIDE [Concomitant]
  9. ALBUTEROL SULFATE AUTOHALER [Concomitant]

REACTIONS (1)
  - ANGINA UNSTABLE [None]
